FAERS Safety Report 7552435-6 (Version None)
Quarter: 2011Q2

REPORT INFORMATION
  Report Type: 
  Country: None (occurrence: None)
  Receive Date: 20110616
  Receipt Date: 20110608
  Transmission Date: 20111010
  Serious: Yes (Death, Hospitalization)
  Sender: FDA-Public Use
  Company Number: US-BAXTER-2011BH018190

PATIENT
  Age: 58 Year
  Sex: Male

DRUGS (1)
  1. DIANEAL [Suspect]
     Indication: PERITONEAL DIALYSIS
     Route: 033
     Dates: end: 20110519

REACTIONS (3)
  - HYPERTENSION [None]
  - BLOOD PRESSURE ABNORMAL [None]
  - PULMONARY HYPERTENSION [None]
